FAERS Safety Report 9379267 (Version 1)
Quarter: 2013Q3

REPORT INFORMATION
  Report Type: Spontaneous
  Country: ES (occurrence: ES)
  Receive Date: 20130702
  Receipt Date: 20130702
  Transmission Date: 20140515
  Serious: Yes (Hospitalization, Other)
  Sender: FDA-Public Use
  Company Number: ES-RANBAXY-2013RR-70120

PATIENT
  Age: 81 Year
  Sex: Female

DRUGS (9)
  1. TRAMADOL [Suspect]
     Indication: OSTEOARTHRITIS
     Dosage: 100 MG/DAY
     Route: 065
  2. SERTRALINE [Suspect]
     Indication: DEPRESSION
     Dosage: 50 MG, QD
     Route: 065
  3. DICLOFENAC [Suspect]
     Indication: OSTEOARTHRITIS
     Dosage: 100 MG/DAY
     Route: 054
  4. IBUPROFEN [Suspect]
     Indication: OSTEOARTHRITIS
     Dosage: 600 MG, TID
     Route: 065
  5. IRON [Concomitant]
     Indication: PRODUCT USED FOR UNKNOWN INDICATION
     Dosage: 40 MG, QD
     Route: 065
  6. CALCIUM CARBONATE/CHOLECALCIFEROL [Concomitant]
     Indication: PRODUCT USED FOR UNKNOWN INDICATION
     Dosage: ONE TABLET OF 1500 MG/400 UI PER DAY
     Route: 065
  7. OMEPRAZOLE [Concomitant]
     Indication: PRODUCT USED FOR UNKNOWN INDICATION
     Dosage: 20 MG, QD
     Route: 065
  8. CODEINE [Concomitant]
     Indication: PRODUCT USED FOR UNKNOWN INDICATION
     Dosage: 1 ML EVERY 8 HOURS
     Route: 048
  9. ACETAMINOPHEN [Concomitant]
     Indication: PRODUCT USED FOR UNKNOWN INDICATION
     Dosage: 1000 MG, TID
     Route: 065

REACTIONS (1)
  - Psychotic disorder [Recovered/Resolved]
